FAERS Safety Report 23182132 (Version 1)
Quarter: 2023Q4

REPORT INFORMATION
  Report Type: Spontaneous
  Country: US (occurrence: None)
  Receive Date: 20231114
  Receipt Date: 20231114
  Transmission Date: 20240110
  Serious: No
  Sender: FDA-Public Use
  Company Number: None

PATIENT
  Age: 11 Year
  Sex: Female

DRUGS (7)
  1. AMBRISENTAN [Suspect]
     Active Substance: AMBRISENTAN
     Indication: Pulmonary arterial hypertension
  2. TADALAFIL [Suspect]
     Active Substance: TADALAFIL
  3. ALBUTEROL [Concomitant]
  4. FLOVENT [Concomitant]
     Active Substance: FLUTICASONE PROPIONATE
  5. DERMA SOOTH [Concomitant]
  6. FLUOCINOLONE ACETONIDE [Concomitant]
     Active Substance: FLUOCINOLONE ACETONIDE
  7. EUCRISA [Concomitant]
     Active Substance: CRISABOROLE

REACTIONS (1)
  - Off label use [None]

NARRATIVE: CASE EVENT DATE: 20231113
